FAERS Safety Report 8774814 (Version 1)
Quarter: 2012Q4

REPORT INFORMATION
  Report Type: 
  Country: US (occurrence: US)
  Receive Date: 20120910
  Receipt Date: 20120910
  Transmission Date: 20130627
  Serious: No
  Sender: FDA-Public Use
  Company Number: US-PFIZER INC-2012218004

PATIENT
  Age: 53 Year
  Sex: Female
  Weight: 136.5 kg

DRUGS (5)
  1. LYRICA [Suspect]
     Indication: DIABETIC NEUROPATHY
     Dosage: 75 mg, 2x/day
     Route: 048
     Dates: start: 201207
  2. METFORMIN [Concomitant]
     Indication: DIABETES MELLITUS
     Dosage: UNK
  3. LEVOTHYROXINE [Concomitant]
     Indication: THYROID DISORDER
     Dosage: UNK
  4. FUROSEMIDE [Concomitant]
     Indication: OEDEMA PERIPHERAL
     Dosage: UNK
  5. MENTAX [Concomitant]
     Indication: VITAMIN SUPPLEMENTATION
     Dosage: UNK

REACTIONS (2)
  - Pain [Not Recovered/Not Resolved]
  - Drug effect incomplete [Not Recovered/Not Resolved]
